FAERS Safety Report 9473363 (Version 3)
Quarter: 2013Q3

REPORT INFORMATION
  Report Type: Report from Study
  Country: US (occurrence: US)
  Receive Date: 20130823
  Receipt Date: 20130911
  Transmission Date: 20140515
  Serious: Yes (Hospitalization)
  Sender: FDA-Public Use
  Company Number: US-JNJFOC-20130809549

PATIENT
  Age: 13 Year
  Sex: Female
  Weight: 65.4 kg

DRUGS (6)
  1. REMICADE [Suspect]
     Indication: INFLAMMATORY BOWEL DISEASE
     Route: 042
     Dates: start: 20130717
  2. REMICADE [Suspect]
     Indication: INFLAMMATORY BOWEL DISEASE
     Route: 042
     Dates: start: 20090501
  3. ALBUTEROL [Concomitant]
     Route: 065
  4. SINGULAIR [Concomitant]
     Route: 065
  5. CHOLECALCIFEROL [Concomitant]
     Route: 065
  6. TYLENOL [Concomitant]
     Route: 065

REACTIONS (3)
  - Tendon injury [Recovered/Resolved with Sequelae]
  - Wound [Recovered/Resolved with Sequelae]
  - Ulnar nerve injury [Recovered/Resolved with Sequelae]
